FAERS Safety Report 5580929-1 (Version None)
Quarter: 2007Q4

REPORT INFORMATION
  Report Type: 
  Country: None (occurrence: None)
  Receive Date: 20071227
  Receipt Date: 20071210
  Transmission Date: 20080405
  Serious: Yes (Death, Life-Threatening, Hospitalization)
  Sender: FDA-Public Use
  Company Number: CLOF-10744

PATIENT
  Age: 16 Year
  Sex: Female
  Weight: 94.3 kg

DRUGS (21)
  1. CLOFARABINE (CLOFARABINE) [Suspect]
     Indication: ACUTE LYMPHOCYTIC LEUKAEMIA
     Dosage: 80 MG, QD INTRAVENOUS
     Route: 042
     Dates: start: 20071030, end: 20071102
  2. ETOPOSIDE [Suspect]
     Indication: ACUTE LYMPHOCYTIC LEUKAEMIA
     Dosage: 200 MG, QD, INTRAVENOUS
     Route: 042
     Dates: start: 20071030, end: 20071102
  3. CYCLOPHOSPHAMIDE [Suspect]
     Indication: ACUTE LYMPHOCYTIC LEUKAEMIA
     Dosage: 880 MG, QD, INTRAVENOUS
     Route: 042
     Dates: start: 20071030, end: 20071102
  4. ACETAMINOPHEN [Concomitant]
  5. ACYCLOVIR [Concomitant]
  6. ALLOPURINOL [Concomitant]
  7. AMIKACIN [Concomitant]
  8. CALCITRIOL [Concomitant]
  9. CHLOROTHIAZIDE [Concomitant]
  10. DIPHENHYDRAMINE HCL [Concomitant]
  11. ENALAPRIL MALEATE [Concomitant]
  12. FUROSEMIDE [Concomitant]
  13. HYDROCORTISONE (HYDROCORTISONE) [Concomitant]
  14. NEUPOGEN [Concomitant]
  15. MEROPENEM (MEROPENEM) [Concomitant]
  16. MORPHINE [Concomitant]
  17. VANCOMYCIN [Concomitant]
  18. VORICONAZOLE (VORICONAZOLE) [Concomitant]
  19. BACTRIM DS (SULFAMETHOXAZOLE, TRIMITHROPIN) [Concomitant]
  20. FUROSEMIDE [Concomitant]
  21. TACROLIMUS [Concomitant]

REACTIONS (22)
  - ACIDOSIS [None]
  - ANXIETY [None]
  - BLOOD ALBUMIN DECREASED [None]
  - CAPILLARY LEAK SYNDROME [None]
  - DIALYSIS [None]
  - FEBRILE NEUTROPENIA [None]
  - FLUID OVERLOAD [None]
  - HEPATOSPLENOMEGALY [None]
  - HYPOTENSION [None]
  - HYPOXIA [None]
  - MASS [None]
  - MENTAL STATUS CHANGES [None]
  - NEPHROPATHY TOXIC [None]
  - NO THERAPEUTIC RESPONSE [None]
  - OEDEMA [None]
  - PERICARDIAL EFFUSION [None]
  - PNEUMONIA [None]
  - PROTEIN TOTAL DECREASED [None]
  - RENAL FAILURE [None]
  - TACHYCARDIA [None]
  - VENOOCCLUSIVE DISEASE [None]
  - VENTRICULAR DYSFUNCTION [None]
